FAERS Safety Report 12547024 (Version 10)
Quarter: 2018Q1

REPORT INFORMATION
  Report Type: Spontaneous
  Country: JP (occurrence: JP)
  Receive Date: 20160711
  Receipt Date: 20180326
  Transmission Date: 20180508
  Serious: Yes (Death, Life-Threatening, Hospitalization, Disabling, Other)
  Sender: FDA-Public Use
  Company Number: JP-BRISTOL-MYERS SQUIBB COMPANY-BMS-2016-056353

PATIENT
  Age: 68 Year
  Sex: Male

DRUGS (5)
  1. PL [Concomitant]
     Active Substance: ACETAMINOPHEN\CAFFEINE\PROMETHAZINE\SALICYLAMIDE
     Indication: PRODUCT USED FOR UNKNOWN INDICATION
     Dosage: UNK
     Route: 065
     Dates: start: 20160616, end: 20160630
  2. OPDIVO [Suspect]
     Active Substance: NIVOLUMAB
     Indication: NON-SMALL CELL LUNG CANCER
     Dosage: 200.4 MG, UNK
     Route: 041
     Dates: start: 20160602, end: 20160602
  3. ATORVASTATIN CALCIUM. [Concomitant]
     Active Substance: ATORVASTATIN CALCIUM
     Indication: PRODUCT USED FOR UNKNOWN INDICATION
     Dosage: UNK
     Route: 065
     Dates: start: 20150915, end: 20160630
  4. OPDIVO [Suspect]
     Active Substance: NIVOLUMAB
     Indication: PRODUCT USED FOR UNKNOWN INDICATION
     Dosage: 200.4 MG, UNK
     Route: 041
     Dates: start: 20160616, end: 20160616
  5. LUPRAC [Concomitant]
     Active Substance: TORSEMIDE
     Indication: PRODUCT USED FOR UNKNOWN INDICATION
     Dosage: UNK
     Route: 065
     Dates: start: 20160329, end: 20160630

REACTIONS (6)
  - Ventricular tachycardia [Unknown]
  - Myasthenia gravis [Recovered/Resolved with Sequelae]
  - Catheterisation cardiac [Unknown]
  - Autoimmune myocarditis [Fatal]
  - Cardiac failure [Unknown]
  - Systemic candida [Unknown]

NARRATIVE: CASE EVENT DATE: 20160630
